FAERS Safety Report 10097142 (Version 2)
Quarter: 2014Q2

REPORT INFORMATION
  Report Type: Spontaneous
  Country: US (occurrence: US)
  Receive Date: 20140422
  Receipt Date: 20140422
  Transmission Date: 20141212
  Serious: No
  Sender: FDA-Public Use
  Company Number: US-GILEAD-2012-0065714

PATIENT
  Sex: Female

DRUGS (3)
  1. LETAIRIS [Suspect]
     Indication: PULMONARY ARTERIAL HYPERTENSION
     Dosage: 10 MG, QD
     Route: 048
     Dates: start: 20121017
  2. TYVASO [Suspect]
     Dosage: UNK
  3. ADCIRCA [Concomitant]

REACTIONS (5)
  - Tremor [Unknown]
  - Aphonia [Unknown]
  - Nausea [Unknown]
  - Fluid retention [Unknown]
  - Dizziness [Recovering/Resolving]
